FAERS Safety Report 9083380 (Version 1)
Quarter: 2013Q1

REPORT INFORMATION
  Report Type: Spontaneous
  Country: US (occurrence: US)
  Receive Date: 20130130
  Receipt Date: 20130130
  Transmission Date: 20140127
  Serious: No
  Sender: FDA-Public Use
  Company Number: US-ABBOTT-12P-163-0954796-00

PATIENT
  Age: 41 Year
  Sex: Female
  Weight: 72.64 kg

DRUGS (4)
  1. HUMIRA 40 MG/0.8 ML PEN [Suspect]
     Indication: CROHN^S DISEASE
     Route: 058
     Dates: start: 201111
  2. ASACOL [Concomitant]
     Indication: CROHN^S DISEASE
  3. VITAMIN D [Concomitant]
     Indication: VITAMIN D DECREASED
  4. IRON [Concomitant]
     Indication: BLOOD IRON DECREASED

REACTIONS (1)
  - Injection site haemorrhage [Recovered/Resolved]
